FAERS Safety Report 10571557 (Version 2)
Quarter: 2014Q4

REPORT INFORMATION
  Report Type: Spontaneous
  Country: US (occurrence: US)
  Receive Date: 20141107
  Receipt Date: 20141110
  Transmission Date: 20150529
  Serious: No
  Sender: FDA-Public Use
  Company Number: US-009507513-1411USA003144

PATIENT
  Age: 24 Year
  Sex: Female

DRUGS (1)
  1. IMPLANON [Suspect]
     Active Substance: ETONOGESTREL
     Dosage: 1 ROD FOR 3 YEARS
     Route: 059
     Dates: start: 20110804

REACTIONS (2)
  - Incorrect drug administration duration [Unknown]
  - Implant site pain [Unknown]

NARRATIVE: CASE EVENT DATE: 20140805
